FAERS Safety Report 9412867 (Version 1)
Quarter: 2013Q3

REPORT INFORMATION
  Report Type: Spontaneous
  Country: JP (occurrence: JP)
  Receive Date: 20130722
  Receipt Date: 20130722
  Transmission Date: 20140515
  Serious: Yes (Death)
  Sender: FDA-Public Use
  Company Number: PHHY2013JP076859

PATIENT
  Age: 83 Year
  Sex: Female

DRUGS (4)
  1. CEFTRIAXONE SODIUM SANDOZ [Suspect]
     Route: 042
  2. PIPERACILLIN SODIUM [Concomitant]
     Route: 042
  3. MEROPENEM [Concomitant]
     Route: 042
  4. GLYCYRRHIZINATE POTASSIUM [Concomitant]

REACTIONS (5)
  - Toxic epidermal necrolysis [Fatal]
  - Stevens-Johnson syndrome [Fatal]
  - Multi-organ failure [Fatal]
  - Generalised oedema [Fatal]
  - Skin exfoliation [Fatal]
